FAERS Safety Report 18122127 (Version 1)
Quarter: 2020Q3

REPORT INFORMATION
  Report Type: Spontaneous
  Country: US (occurrence: US)
  Receive Date: 20200807
  Receipt Date: 20200807
  Transmission Date: 20201103
  Serious: No
  Sender: FDA-Public Use
  Company Number: US-GLENMARK PHARMACEUTICALS-2020GMK046778

PATIENT

DRUGS (4)
  1. LIDOCAINE OINTMENT USP 5% [Suspect]
     Active Substance: LIDOCAINE
     Dosage: UNK (INEFFECTIVE BATCH) (ONCE A DAY BUT CAN BE ADJUSTED ACCORDING TO THE CONDITION)
     Route: 061
     Dates: start: 20200318
  2. LIDOCAINE OINTMENT USP 5% [Suspect]
     Active Substance: LIDOCAINE
     Indication: DIABETIC NEUROPATHY
     Dosage: UNK (EFFECTIVE BATCH) (ONCE A DAY BUT CAN BE ADJUSTED ACCORDING TO THE CONDITION)
     Route: 061
  3. METFORMIN [Concomitant]
     Active Substance: METFORMIN HYDROCHLORIDE
     Indication: DIABETES MELLITUS
     Dosage: UNK, OD
     Route: 065
  4. TRULICITY [Concomitant]
     Active Substance: DULAGLUTIDE
     Indication: DIABETES MELLITUS
     Dosage: UNK, QW (ONCE A WEEK)
     Route: 065

REACTIONS (5)
  - Drug effective for unapproved indication [Unknown]
  - Product colour issue [Unknown]
  - Drug ineffective for unapproved indication [Unknown]
  - Product quality issue [Unknown]
  - Product physical consistency issue [Unknown]

NARRATIVE: CASE EVENT DATE: 202003
